FAERS Safety Report 4939204-8 (Version None)
Quarter: 2006Q1

REPORT INFORMATION
  Report Type: 
  Country: None (occurrence: None)
  Receive Date: 20060310
  Receipt Date: 20060224
  Transmission Date: 20060701
  Serious: Yes (Other)
  Sender: FDA-Public Use
  Company Number: 2006SE01148

PATIENT
  Age: 61 Year
  Sex: Male
  Weight: 85 kg

DRUGS (8)
  1. KENZEN 8 MG [Suspect]
     Indication: HYPERTENSION
     Route: 048
     Dates: start: 20051215, end: 20051227
  2. SPIRONOLACTONE ALTIZIDE [Concomitant]
     Indication: HYPERTENSION
     Route: 048
  3. ASPEGIC 1000 [Concomitant]
     Indication: TRANSIENT ISCHAEMIC ATTACK
     Route: 048
  4. DILRENE [Concomitant]
     Indication: HYPERTENSION
     Route: 048
  5. LODALES [Concomitant]
     Indication: DYSLIPIDAEMIA
     Route: 048
  6. PENTOXIFYLLINE [Concomitant]
     Indication: VASODILATATION
     Route: 048
  7. GINKOR FORT [Concomitant]
     Indication: VENOUS INSUFFICIENCY
     Route: 048
  8. ALLOPURINOL [Concomitant]
     Indication: DRUG USE FOR UNKNOWN INDICATION
     Route: 048

REACTIONS (2)
  - ECZEMA [None]
  - TOXIC EPIDERMAL NECROLYSIS [None]
